FAERS Safety Report 17162945 (Version 3)
Quarter: 2020Q2

REPORT INFORMATION
  Report Type: Spontaneous
  Country: US (occurrence: US)
  Receive Date: 20191217
  Receipt Date: 20200514
  Transmission Date: 20200713
  Serious: Yes (Hospitalization, Other)
  Sender: FDA-Public Use
  Company Number: US-GILEAD-2019-0442875

PATIENT
  Age: 47 Year
  Sex: Female

DRUGS (52)
  1. TRUVADA [Suspect]
     Active Substance: EMTRICITABINE\TENOFOVIR DISOPROXIL FUMARATE
     Indication: HIV INFECTION
     Dosage: UNK
     Route: 048
     Dates: start: 201510, end: 201511
  2. ASPIRIN 81 [Concomitant]
     Active Substance: ASPIRIN
  3. TIVICAY [Concomitant]
     Active Substance: DOLUTEGRAVIR SODIUM
     Dosage: UNK
     Dates: start: 201904
  4. KEPPRA [Concomitant]
     Active Substance: LEVETIRACETAM
  5. COMPLERA [Suspect]
     Active Substance: EMTRICITABINE\RILPIVIRINE HYDROCHLORIDE\TENOFOVIR DISOPROXIL FUMARATE
     Dosage: 1 DOSAGE FORM (200-25-300 MG), QD
     Route: 048
     Dates: start: 201511, end: 201812
  6. PRAVASTATIN. [Concomitant]
     Active Substance: PRAVASTATIN
  7. DULOXETINE. [Concomitant]
     Active Substance: DULOXETINE
  8. AMBIEN [Concomitant]
     Active Substance: ZOLPIDEM TARTRATE
  9. EDURANT [Concomitant]
     Active Substance: RILPIVIRINE HYDROCHLORIDE
  10. VENOFER [Concomitant]
     Active Substance: IRON SUCROSE
  11. VITAMIN D [COLECALCIFEROL] [Concomitant]
     Active Substance: CHOLECALCIFEROL
  12. DESCOVY [Concomitant]
     Active Substance: EMTRICITABINE\TENOFOVIR ALAFENAMIDE FUMARATE
     Indication: HIV INFECTION
     Dosage: 1 DOSAGE FORM (200-25 MG), QD
     Route: 048
     Dates: start: 201904
  13. TRAZODONE [Concomitant]
     Active Substance: TRAZODONE HYDROCHLORIDE
  14. PERCOCET [Concomitant]
     Active Substance: ACETAMINOPHEN\OXYCODONE HYDROCHLORIDE
  15. RETACRIT [Concomitant]
     Active Substance: EPOETIN ALFA-EPBX
  16. JANUVIA [Concomitant]
     Active Substance: SITAGLIPTIN PHOSPHATE
  17. HUMULIN NOS [Concomitant]
     Active Substance: INSULIN HUMAN
  18. VITAMINS NOS [Concomitant]
     Active Substance: VITAMINS
  19. MIRTAZAPINE. [Concomitant]
     Active Substance: MIRTAZAPINE
  20. FERROUS SULFATE. [Concomitant]
     Active Substance: FERROUS SULFATE
  21. K PHOS NEUTRAL [Concomitant]
     Active Substance: POTASSIUM PHOSPHATE, MONOBASIC\SODIUM PHOSPHATE, DIBASIC, ANHYDROUS\SODIUM PHOSPHATE, MONOBASIC, MONOHYDRATE
  22. NOVOLOG [Concomitant]
     Active Substance: INSULIN ASPART
  23. TRUVADA [Suspect]
     Active Substance: EMTRICITABINE\TENOFOVIR DISOPROXIL FUMARATE
     Dosage: UNK
     Route: 048
     Dates: start: 201805
  24. STRIBILD [Suspect]
     Active Substance: COBICISTAT\ELVITEGRAVIR\EMTRICITABINE\TENOFOVIR DISOPROXIL FUMARATE
     Indication: HIV INFECTION
     Dosage: 1 DOSAGE FORM, QD
     Route: 048
     Dates: start: 201812, end: 201904
  25. BUSPIRONE [Concomitant]
     Active Substance: BUSPIRONE HYDROCHLORIDE
  26. GABAPENTIN. [Concomitant]
     Active Substance: GABAPENTIN
  27. ATORVASTATIN [Concomitant]
     Active Substance: ATORVASTATIN
  28. EPOGEN [Concomitant]
     Active Substance: ERYTHROPOIETIN
  29. ALOGLIPTIN;METFORMIN [Concomitant]
  30. METFORMIN [Suspect]
     Active Substance: METFORMIN HYDROCHLORIDE
     Indication: TYPE 2 DIABETES MELLITUS
     Dosage: 500 MG, QD
     Route: 048
  31. BASAGLAR [Concomitant]
     Active Substance: INSULIN GLARGINE
  32. LIDODERM [Concomitant]
     Active Substance: LIDOCAINE
  33. AMPICILLIN [Concomitant]
     Active Substance: AMPICILLIN
  34. GLIPIZIDE. [Concomitant]
     Active Substance: GLIPIZIDE
  35. PROCRIT [Concomitant]
     Active Substance: ERYTHROPOIETIN
  36. POTASSIUM PHOSPHATES [Concomitant]
     Active Substance: POTASSIUM PHOSPHATE, DIBASIC\POTASSIUM PHOSPHATE, MONOBASIC
  37. FLUTICASONE PROPIONATE. [Concomitant]
     Active Substance: FLUTICASONE PROPIONATE
  38. LOPERAMIDE [Concomitant]
     Active Substance: LOPERAMIDE
  39. SODIUM BICARBONATE. [Concomitant]
     Active Substance: SODIUM BICARBONATE
  40. CALCITRIOL. [Concomitant]
     Active Substance: CALCITRIOL
  41. BACLOFEN. [Concomitant]
     Active Substance: BACLOFEN
  42. ALOGLIPTIN BENZOATE [Concomitant]
     Active Substance: ALOGLIPTIN BENZOATE
  43. QUETIAPINE. [Concomitant]
     Active Substance: QUETIAPINE
  44. HUMALOG [Concomitant]
     Active Substance: INSULIN LISPRO
  45. CEPHALEXIN [CEFALEXIN] [Concomitant]
     Active Substance: CEPHALEXIN
  46. GLIMEPIRIDE. [Concomitant]
     Active Substance: GLIMEPIRIDE
  47. COMPLERA [Suspect]
     Active Substance: EMTRICITABINE\RILPIVIRINE HYDROCHLORIDE\TENOFOVIR DISOPROXIL FUMARATE
     Indication: HIV INFECTION
     Dosage: 1 DOSAGE FORM (200-25-300 MG), QD
     Route: 048
     Dates: start: 201302, end: 201510
  48. BIKTARVY [Concomitant]
     Active Substance: BICTEGRAVIR SODIUM\EMTRICITABINE\TENOFOVIR ALAFENAMIDE FUMARATE
     Indication: HIV INFECTION
  49. ADMELOG [Concomitant]
     Active Substance: INSULIN LISPRO
  50. POTASSIUM CHLORIDE. [Concomitant]
     Active Substance: POTASSIUM CHLORIDE
  51. POTASSIUM CITRATE. [Concomitant]
     Active Substance: POTASSIUM CITRATE
  52. ZOFRAN [Concomitant]
     Active Substance: ONDANSETRON HYDROCHLORIDE

REACTIONS (9)
  - Anxiety [Unknown]
  - Chronic kidney disease [Not Recovered/Not Resolved]
  - Acute kidney injury [Recovered/Resolved]
  - Pain [Unknown]
  - Economic problem [Unknown]
  - Anhedonia [Unknown]
  - Renal failure [Unknown]
  - Emotional distress [Unknown]
  - Fanconi syndrome acquired [Unknown]

NARRATIVE: CASE EVENT DATE: 201811
